FAERS Safety Report 10164256 (Version 2)
Quarter: 2014Q2

REPORT INFORMATION
  Report Type: Spontaneous
  Country: US (occurrence: US)
  Receive Date: 20140510
  Receipt Date: 20140510
  Transmission Date: 20141212
  Serious: No
  Sender: FDA-Public Use
  Company Number: US-BRISTOL-MYERS SQUIBB COMPANY-20060174

PATIENT
  Age: 60 Year
  Sex: Male
  Weight: 75.28 kg

DRUGS (3)
  1. BYETTA PEN DISPOSABLE [Suspect]
     Indication: TYPE 2 DIABETES MELLITUS
  2. METFORMIN HCL [Suspect]
     Route: 048
  3. GEMFIBROZIL [Concomitant]
     Route: 048

REACTIONS (5)
  - Blood glucose increased [Unknown]
  - Weight decreased [Unknown]
  - Nausea [Recovering/Resolving]
  - Tongue discolouration [Not Recovered/Not Resolved]
  - Product quality issue [Unknown]
